FAERS Safety Report 4590485-2 (Version None)
Quarter: 2005Q1

REPORT INFORMATION
  Report Type: 
  Country: None (occurrence: None)
  Receive Date: 20050224
  Receipt Date: 20050205
  Transmission Date: 20050727
  Serious: Yes (Death)
  Sender: FDA-Public Use
  Company Number: PHHO2005CN02155

PATIENT
  Age: 53 Year
  Sex: Male

DRUGS (1)
  1. GLEEVEC [Suspect]
     Indication: BLAST CRISIS IN MYELOGENOUS LEUKAEMIA
     Dates: start: 20040811, end: 20041130

REACTIONS (2)
  - ANAEMIA [None]
  - PANCYTOPENIA [None]
